FAERS Safety Report 15133165 (Version 1)
Quarter: 2018Q3

REPORT INFORMATION
  Report Type: Spontaneous
  Country: FR (occurrence: FR)
  Receive Date: 20180712
  Receipt Date: 20180712
  Transmission Date: 20181010
  Serious: Yes (Hospitalization)
  Sender: FDA-Public Use
  Company Number: FR-TEVA-2018-FR-923192

PATIENT
  Age: 56 Year
  Sex: Female

DRUGS (11)
  1. DRILL (AMMONIUM GLYCYRRHIZATE\ASCORBIC ACID\CHLORHEXIDINE GLUCONATE\TETRACAINE HYDROCHLORIDE) [Suspect]
     Active Substance: AMMONIUM GLYCYRRHIZATE\ASCORBIC ACID\CHLORHEXIDINE GLUCONATE\TETRACAINE HYDROCHLORIDE
     Route: 048
     Dates: start: 20151225, end: 20151230
  2. AMOXICILLIN. [Suspect]
     Active Substance: AMOXICILLIN
     Indication: BRONCHITIS
     Route: 048
     Dates: start: 20151230, end: 20160105
  3. CLIMASTON 1 MG/5 MG, COMPRIM? PELLICUL? [Concomitant]
     Route: 048
     Dates: start: 201503
  4. METEOSPASMYL [Concomitant]
     Route: 048
  5. DAFALGAN CODEINE [Suspect]
     Active Substance: ACETAMINOPHEN\CODEINE PHOSPHATE
     Route: 048
     Dates: start: 201511
  6. IRBESARTAN. [Concomitant]
     Active Substance: IRBESARTAN
     Route: 048
     Dates: start: 201404, end: 201601
  7. MIZOLLEN 10 MG, COMPRIM? PELLICUL? ? LIB?RATION MODIFI?E [Concomitant]
     Route: 048
  8. UVEDOSE [Concomitant]
     Active Substance: CHOLECALCIFEROL
     Route: 048
     Dates: start: 201512, end: 201601
  9. VENTOLINE [Concomitant]
     Active Substance: ALBUTEROL
     Route: 065
  10. LYSOPAINE [Concomitant]
     Active Substance: CETYLPYRIDINIUM CHLORIDE\LYSOZYME HYDROCHLORIDE
     Route: 048
     Dates: start: 20151226, end: 20160105
  11. ESOMEPRAZOLE [Concomitant]
     Active Substance: ESOMEPRAZOLE
     Route: 048

REACTIONS (3)
  - Drug reaction with eosinophilia and systemic symptoms [Recovered/Resolved]
  - Circulatory collapse [Recovered/Resolved]
  - Respiratory distress [Recovered/Resolved]

NARRATIVE: CASE EVENT DATE: 20160105
